FAERS Safety Report 17539366 (Version 2)
Quarter: 2020Q3

REPORT INFORMATION
  Report Type: Spontaneous
  Country: US (occurrence: US)
  Receive Date: 20200313
  Receipt Date: 20200825
  Transmission Date: 20201102
  Serious: No
  Sender: FDA-Public Use
  Company Number: US-PFIZER INC-2020109316

PATIENT
  Age: 60 Year
  Sex: Female
  Weight: 95.24 kg

DRUGS (2)
  1. XELJANZ XR [Suspect]
     Active Substance: TOFACITINIB CITRATE
     Indication: RHEUMATOID ARTHRITIS
     Dosage: 11 MG, DAILY
     Route: 048
  2. MELOXICAM. [Concomitant]
     Active Substance: MELOXICAM
     Dosage: 7.5 MG, DAILY
     Route: 048

REACTIONS (5)
  - Condition aggravated [Unknown]
  - Illness [Unknown]
  - Therapeutic product effect decreased [Unknown]
  - Weight decreased [Unknown]
  - Osteoarthritis [Unknown]

NARRATIVE: CASE EVENT DATE: 2020
